FAERS Safety Report 8962570 (Version 2)
Quarter: 2014Q1

REPORT INFORMATION
  Report Type: Spontaneous
  Country: US (occurrence: US)
  Receive Date: 20121213
  Receipt Date: 20140109
  Transmission Date: 20141002
  Serious: Yes (Hospitalization, Other)
  Sender: FDA-Public Use
  Company Number: US-PFIZER INC-2012313083

PATIENT
  Age: 71 Year
  Sex: Male
  Weight: 63.95 kg

DRUGS (1)
  1. CARDURA [Suspect]
     Indication: URINE ABNORMALITY
     Dosage: 2 MG, 1X/DAY

REACTIONS (3)
  - Aortic aneurysm [Unknown]
  - Myocardial infarction [Unknown]
  - Heart injury [Unknown]
